FAERS Safety Report 7915816-4 (Version None)
Quarter: 2011Q4

REPORT INFORMATION
  Report Type: 
  Country: None (occurrence: None)
  Receive Date: 20111115
  Receipt Date: 20111104
  Transmission Date: 20120403
  Serious: Yes (Hospitalization, Other)
  Sender: FDA-Public Use
  Company Number: US-BAXTER-2011BH033629

PATIENT
  Sex: Male

DRUGS (3)
  1. DIANEAL [Suspect]
     Indication: PERITONEAL DIALYSIS
     Route: 033
  2. UNSPECIFIED ORAL STEROIDS [Suspect]
     Indication: VIITH NERVE PARALYSIS
     Route: 048
     Dates: start: 20111001, end: 20111025
  3. DIANEAL [Suspect]
     Indication: PERITONEAL DIALYSIS
     Route: 033

REACTIONS (2)
  - VIITH NERVE PARALYSIS [None]
  - HYPOTENSION [None]
